FAERS Safety Report 25889428 (Version 1)
Quarter: 2025Q4

REPORT INFORMATION
  Report Type: Spontaneous
  Country: US (occurrence: US)
  Receive Date: 20251007
  Receipt Date: 20251007
  Transmission Date: 20260118
  Serious: No
  Sender: KYOWA
  Company Number: US-KYOWAKIRIN-2025KK018788

PATIENT

DRUGS (1)
  1. CRYSVITA [Suspect]
     Active Substance: BUROSUMAB-TWZA
     Indication: Product used for unknown indication
     Dosage: UNK
     Route: 065

REACTIONS (4)
  - Blood phosphorus decreased [Unknown]
  - Bone pain [Unknown]
  - Muscular weakness [Unknown]
  - Insomnia [Unknown]

NARRATIVE: CASE EVENT DATE: 20250901
